FAERS Safety Report 6455809-X (Version None)
Quarter: 2009Q4

REPORT INFORMATION
  Report Type: 
  Country: None (occurrence: None)
  Receive Date: 20091125
  Receipt Date: 20090821
  Transmission Date: 20100525
  Serious: No
  Sender: FDA-Public Use
  Company Number: US-ABBOTT-09P-163-0592979-00

PATIENT
  Sex: Male
  Weight: 78.996 kg

DRUGS (5)
  1. SIMCOR [Suspect]
     Indication: BLOOD CHOLESTEROL
     Dosage: 500/20 MILLIGRAMS
     Route: 048
     Dates: start: 20090609
  2. CLONAZEPAM [Concomitant]
     Indication: ANXIETY
     Route: 048
  3. NEXIUM [Concomitant]
     Indication: DYSPEPSIA
     Route: 048
  4. LOVAZA [Concomitant]
     Indication: BLOOD CHOLESTEROL
     Route: 048
  5. FOLIC ACID [Concomitant]
     Indication: DRUG USE FOR UNKNOWN INDICATION
     Route: 048

REACTIONS (2)
  - FEELING HOT [None]
  - FLUSHING [None]
